FAERS Safety Report 5330089-7 (Version None)
Quarter: 2007Q2

REPORT INFORMATION
  Report Type: 
  Country: None (occurrence: None)
  Receive Date: 20070521
  Receipt Date: 20070514
  Transmission Date: 20071010
  Serious: Yes (Life-Threatening, Hospitalization, Other)
  Sender: FDA-Public Use
  Company Number: US-MERCK-0703USA05192

PATIENT
  Age: 63 Year
  Sex: Male
  Weight: 96 kg

DRUGS (4)
  1. JANUVIA [Suspect]
     Indication: DIABETES MELLITUS NON-INSULIN-DEPENDENT
     Route: 048
     Dates: start: 20070313, end: 20070315
  2. JANUVIA [Suspect]
     Indication: HYPERGLYCAEMIA
     Route: 048
     Dates: start: 20070313, end: 20070315
  3. ASPIRIN [Concomitant]
     Route: 065
  4. LISINOPRIL [Concomitant]
     Route: 065

REACTIONS (2)
  - HYPOGLYCAEMIA [None]
  - SYNCOPE [None]
